FAERS Safety Report 8033917-X (Version None)
Quarter: 2011Q4

REPORT INFORMATION
  Report Type: 
  Country: None (occurrence: None)
  Receive Date: 20111202
  Receipt Date: 20100120
  Transmission Date: 20120403
  Serious: Yes (Hospitalization, Other)
  Sender: FDA-Public Use
  Company Number: 2010SP004278

PATIENT
  Age: 23 Year
  Sex: Female
  Weight: 86.1834 kg

DRUGS (4)
  1. NSAID [Concomitant]
  2. FEMCON FE (ORAL CONTRACEPTIVE) [Concomitant]
  3. NUVARING [Suspect]
     Indication: DYSFUNCTIONAL UTERINE BLEEDING
     Dates: start: 20071228, end: 20080117
  4. NUVARING [Suspect]
     Indication: CONTRACEPTION
     Dates: start: 20071228, end: 20080117

REACTIONS (6)
  - NAUSEA [None]
  - DIARRHOEA [None]
  - VOMITING [None]
  - PULMONARY EMBOLISM [None]
  - CHLAMYDIA TEST POSITIVE [None]
  - MUSCLE SPASMS [None]
